FAERS Safety Report 8547576-0 (Version None)
Quarter: 2012Q3

REPORT INFORMATION
  Report Type: 
  Country: None (occurrence: None)
  Receive Date: 20120727
  Receipt Date: 20120404
  Transmission Date: 20120928
  Serious: No
  Sender: FDA-Public Use
  Company Number: US-ASTRAZENECA-2012SE22357

PATIENT
  Age: 51 Year
  Sex: Female
  Weight: 75.3 kg

DRUGS (9)
  1. SEROQUEL [Suspect]
     Indication: BIPOLAR II DISORDER
     Route: 048
     Dates: start: 20120101
  2. LAMICTAL [Concomitant]
  3. KLONOPIN [Concomitant]
  4. PROTONIX [Concomitant]
  5. OTC VITAMINES [Concomitant]
  6. SEROQUEL [Suspect]
     Dosage: 50 MG AT TWO PM
     Route: 048
     Dates: start: 20120101
  7. THYROID TAB [Concomitant]
  8. FAMOTIDINE [Concomitant]
  9. SEROQUEL [Suspect]
     Route: 048
     Dates: start: 20120101

REACTIONS (2)
  - INTENTIONAL DRUG MISUSE [None]
  - THYROID FUNCTION TEST ABNORMAL [None]
